FAERS Safety Report 5032051-0 (Version None)
Quarter: 2006Q2

REPORT INFORMATION
  Report Type: 
  Country: None (occurrence: None)
  Receive Date: 20060616
  Receipt Date: 20060606
  Transmission Date: 20061013
  Serious: Yes (Other)
  Sender: FDA-Public Use
  Company Number: CHPA2006US05649

PATIENT
  Age: 30 Month
  Sex: Female

DRUGS (1)
  1. TRIAMINIC COLD + COUGH CHERRY (NCH) (CHLORPHENIRAMINE MALEATE, DEXTROM [Suspect]
     Dosage: 5 ML EVERY 4 TO 6 HOURS, ORAL
     Route: 048
     Dates: start: 20060605

REACTIONS (2)
  - RESPIRATORY DEPTH INCREASED [None]
  - RESPIRATORY DISORDER [None]
